FAERS Safety Report 9807059 (Version 2)
Quarter: 2014Q1

REPORT INFORMATION
  Report Type: Spontaneous
  Country: IT (occurrence: IT)
  Receive Date: 20140110
  Receipt Date: 20140328
  Transmission Date: 20141002
  Serious: Yes (Hospitalization)
  Sender: FDA-Public Use
  Company Number: IT-ROCHE-1331366

PATIENT
  Age: 90 Year
  Sex: Female

DRUGS (9)
  1. RIVOTRIL [Suspect]
     Indication: PSYCHOMOTOR HYPERACTIVITY
     Route: 048
     Dates: start: 20120203, end: 20130203
  2. TRITTICO [Suspect]
     Indication: PSYCHOMOTOR HYPERACTIVITY
     Route: 048
     Dates: start: 20130201, end: 20130203
  3. FUROSEMIDE [Concomitant]
  4. PANTOPRAZOLE [Concomitant]
  5. REMERON [Concomitant]
  6. SINEMET [Concomitant]
  7. TIKLID [Concomitant]
  8. TAPAZOLE [Concomitant]
  9. INDERAL [Concomitant]

REACTIONS (2)
  - Cachexia [Recovering/Resolving]
  - Sopor [Recovering/Resolving]
